FAERS Safety Report 6810391-X (Version None)
Quarter: 2010Q2

REPORT INFORMATION
  Report Type: 
  Country: None (occurrence: None)
  Receive Date: 20100630
  Receipt Date: 20100616
  Transmission Date: 20101027
  Serious: Yes (Other)
  Sender: FDA-Public Use
  Company Number: PHHY2010JP37891

PATIENT
  Age: 6 Year
  Sex: Male

DRUGS (3)
  1. TEGRETOL [Suspect]
     Indication: PETIT MAL EPILEPSY
     Dosage: UNK,UNK
  2. TEGRETOL [Suspect]
     Indication: PARTIAL SEIZURES
  3. VALPROATE SODIUM [Concomitant]
     Indication: PETIT MAL EPILEPSY
     Dosage: UNK

REACTIONS (3)
  - DISTURBANCE IN ATTENTION [None]
  - PSYCHOMOTOR HYPERACTIVITY [None]
  - STATUS EPILEPTICUS [None]
